FAERS Safety Report 8328816-X (Version None)
Quarter: 2012Q2

REPORT INFORMATION
  Report Type: 
  Country: None (occurrence: None)
  Receive Date: 20120502
  Receipt Date: 20120426
  Transmission Date: 20120825
  Serious: Yes (Other)
  Sender: FDA-Public Use
  Company Number: US-CELGENEUS-163-21880-12043108

PATIENT
  Sex: Male
  Weight: 81.72 kg

DRUGS (6)
  1. ACYCLOVIR [Concomitant]
     Route: 065
  2. GABAPENTIN [Concomitant]
     Route: 065
  3. IBUPROFEN TABLETS [Concomitant]
     Route: 065
  4. ASPIRIN [Concomitant]
     Route: 065
  5. REVLIMID [Suspect]
     Indication: MULTIPLE MYELOMA
     Dosage: 10 MILLIGRAM
     Route: 048
     Dates: start: 20111105
  6. OXYCODONE HCL [Concomitant]
     Route: 065

REACTIONS (2)
  - MUSCLE SPASMS [None]
  - MUSCULOSKELETAL STIFFNESS [None]
